FAERS Safety Report 25859348 (Version 1)
Quarter: 2025Q3

REPORT INFORMATION
  Report Type: Other
  Country: IN (occurrence: IN)
  Receive Date: 20250929
  Receipt Date: 20250929
  Transmission Date: 20251020
  Serious: Yes (Life-Threatening)
  Sender: ALVOGEN
  Company Number: IN-ALVOGEN-2025098751

PATIENT
  Age: 67 Year
  Sex: Female

DRUGS (1)
  1. DAPSONE [Suspect]
     Active Substance: DAPSONE
     Indication: Leprosy

REACTIONS (1)
  - Drug reaction with eosinophilia and systemic symptoms [Unknown]
